FAERS Safety Report 20717579 (Version 2)
Quarter: 2022Q2

REPORT INFORMATION
  Report Type: Report from Study
  Country: RU (occurrence: RU)
  Receive Date: 20220417
  Receipt Date: 20220419
  Transmission Date: 20220721
  Serious: Yes (Hospitalization, Other)
  Sender: FDA-Public Use
  Company Number: RU-NOVARTISPH-NVSC2021RU277330

PATIENT
  Age: 58 Year
  Sex: Female
  Weight: 76 kg

DRUGS (12)
  1. RIBOCICLIB [Suspect]
     Active Substance: RIBOCICLIB
     Indication: HER2 negative breast cancer
     Dosage: 400 MG, EVERY 21 DAY
     Route: 048
     Dates: start: 20200714, end: 20210830
  2. RIBOCICLIB [Suspect]
     Active Substance: RIBOCICLIB
     Dosage: 200 MG, EVERY 21 DAY
     Route: 048
     Dates: start: 20210916
  3. LETROZOLE [Suspect]
     Active Substance: LETROZOLE
     Indication: HER2 negative breast cancer
     Dosage: 2.5 MG, QD
     Route: 048
     Dates: start: 20200714
  4. BISOPROLOL [Concomitant]
     Active Substance: BISOPROLOL
     Indication: Tachycardia
     Dosage: 5 MG, BID
     Route: 048
     Dates: start: 2010
  5. ALLAPININ [Concomitant]
     Indication: Tachycardia
     Dosage: 25 MG, TID
     Route: 048
     Dates: start: 2010
  6. ENALAPRIL [Concomitant]
     Active Substance: ENALAPRIL
     Indication: Tachycardia
     Dosage: 2.5 MG, BID
     Route: 048
     Dates: start: 2010
  7. ATORVASTATIN [Concomitant]
     Active Substance: ATORVASTATIN
     Indication: Dyslipidaemia
     Dosage: 80 MG, EVERY DAY
     Route: 048
     Dates: start: 20191210
  8. KETONAL [Concomitant]
     Indication: Pain
     Dosage: 2 ML INTRAMUS OF NECESSITY
     Route: 065
     Dates: start: 20211115
  9. ELIQUIS [Concomitant]
     Active Substance: APIXABAN
     Indication: Thrombosis prophylaxis
     Dosage: 5 MG, QD
     Route: 048
     Dates: start: 20211115
  10. CHOLECALCIFEROL [Concomitant]
     Active Substance: CHOLECALCIFEROL
     Indication: Osteoporosis prophylaxis
     Dosage: 2000 U ORAL EVERYDAY
     Route: 048
     Dates: start: 20211224
  11. GLUCOPHAGE [Concomitant]
     Active Substance: METFORMIN HYDROCHLORIDE
     Indication: Type 2 diabetes mellitus
     Dosage: 850 MG, BID
     Route: 048
     Dates: start: 202112
  12. CALCIUM [Concomitant]
     Active Substance: CALCIUM
     Indication: Osteoporosis prophylaxis
     Dosage: 1000 MG, BID
     Route: 048
     Dates: start: 20211224

REACTIONS (5)
  - Back pain [Recovering/Resolving]
  - Papillary thyroid cancer [Recovered/Resolved]
  - Second primary malignancy [Recovered/Resolved]
  - Lumbar vertebral fracture [Recovered/Resolved]
  - Spinal cord compression [Recovering/Resolving]

NARRATIVE: CASE EVENT DATE: 20211014
